FAERS Safety Report 13227757 (Version 1)
Quarter: 2017Q1

REPORT INFORMATION
  Report Type: Report from Study
  Country: US (occurrence: US)
  Receive Date: 20170213
  Receipt Date: 20170213
  Transmission Date: 20170428
  Serious: Yes (Life-Threatening, Hospitalization, Other)
  Sender: FDA-Public Use
  Company Number: US-GILEAD-2017-0256207

PATIENT
  Age: 62 Year
  Sex: Female
  Weight: 89.8 kg

DRUGS (15)
  1. ZYVOX [Concomitant]
     Active Substance: LINEZOLID
  2. KLOR-CON [Concomitant]
     Active Substance: POTASSIUM CHLORIDE
  3. DELTASONE                          /00016001/ [Concomitant]
  4. ASPIRIN                            /00002701/ [Concomitant]
     Active Substance: ASPIRIN
  5. FLONASE                            /00908302/ [Concomitant]
     Active Substance: MOMETASONE FUROATE
  6. IDELALISIB [Suspect]
     Active Substance: IDELALISIB
     Indication: B-CELL LYMPHOMA
     Dosage: 150 MG, BID
     Route: 048
     Dates: start: 201610
  7. ROCALTROL [Concomitant]
     Active Substance: CALCITRIOL
  8. SODIUM BICARB.PED [Concomitant]
  9. MEPRON                             /00049601/ [Concomitant]
     Active Substance: METHYLPREDNISOLONE
  10. ACETAMINOPHEN. [Concomitant]
     Active Substance: ACETAMINOPHEN
  11. BICITRA                            /00586801/ [Concomitant]
  12. FERROUS SULFATE. [Concomitant]
     Active Substance: FERROUS SULFATE
  13. ZOLOFT [Concomitant]
     Active Substance: SERTRALINE HYDROCHLORIDE
  14. TESSALON [Concomitant]
     Active Substance: BENZONATATE
  15. DESYREL [Concomitant]
     Active Substance: TRAZODONE HYDROCHLORIDE

REACTIONS (2)
  - Pneumonitis [Unknown]
  - Malaise [Unknown]

NARRATIVE: CASE EVENT DATE: 20170110
